FAERS Safety Report 9750071 (Version 1)
Quarter: 2013Q4

REPORT INFORMATION
  Report Type: Spontaneous
  Country: US (occurrence: US)
  Receive Date: 20131212
  Receipt Date: 20131212
  Transmission Date: 20140711
  Serious: No
  Sender: FDA-Public Use
  Company Number: US-GILEAD-US-CVT-090797

PATIENT
  Age: 83 Year
  Sex: Male

DRUGS (2)
  1. RANEXA [Suspect]
     Indication: ANGINA PECTORIS
     Route: 048
     Dates: start: 200911, end: 200911
  2. RANEXA [Suspect]
     Route: 048
     Dates: start: 200911, end: 20091206

REACTIONS (3)
  - Hallucination [Recovered/Resolved]
  - Sleep disorder [Recovered/Resolved]
  - Wrong technique in drug usage process [Recovered/Resolved]
